FAERS Safety Report 6812375-4 (Version None)
Quarter: 2010Q3

REPORT INFORMATION
  Report Type: 
  Country: None (occurrence: None)
  Receive Date: 20100701
  Receipt Date: 20100624
  Transmission Date: 20110219
  Serious: Yes (Hospitalization, Other)
  Sender: FDA-Public Use
  Company Number: US-GENZYME-FABR-1001437

PATIENT

DRUGS (2)
  1. FABRAZYME [Suspect]
     Indication: FABRY'S DISEASE
     Dosage: UNK
     Dates: start: 20040501
  2. FABRAZYME [Suspect]
     Dosage: 35 MG, QW
     Route: 042

REACTIONS (4)
  - BONE DISORDER [None]
  - BONE PAIN [None]
  - FOOT FRACTURE [None]
  - OEDEMA PERIPHERAL [None]
